FAERS Safety Report 6844290-4 (Version None)
Quarter: 2010Q3

REPORT INFORMATION
  Report Type: 
  Country: None (occurrence: None)
  Receive Date: 20100715
  Receipt Date: 20100706
  Transmission Date: 20110219
  Serious: Yes (Death, Hospitalization)
  Sender: FDA-Public Use
  Company Number: CO-ROCHE-711507

PATIENT
  Sex: Male

DRUGS (2)
  1. CELLCEPT [Suspect]
     Dosage: FREQUENCY: QD
     Route: 048
     Dates: start: 20091201, end: 20100513
  2. NAPROXEN [Concomitant]
     Indication: PAIN
     Dosage: FREQUENCY: QD
     Route: 048

REACTIONS (2)
  - CARDIOPULMONARY FAILURE [None]
  - DYSPNOEA [None]
